FAERS Safety Report 6670588-9 (Version None)
Quarter: 2010Q2

REPORT INFORMATION
  Report Type: 
  Country: None (occurrence: None)
  Receive Date: 20100407
  Receipt Date: 20091218
  Transmission Date: 20101027
  Serious: Yes (Hospitalization)
  Sender: FDA-Public Use
  Company Number: JP-JNJFOC-20091002646

PATIENT
  Sex: Female

DRUGS (14)
  1. CRAVIT [Suspect]
     Indication: CUTANEOUS TUBERCULOSIS
     Route: 048
  2. CRAVIT [Suspect]
     Route: 048
  3. CRAVIT [Suspect]
     Route: 048
  4. CRAVIT [Suspect]
     Indication: PULMONARY TUBERCULOSIS
     Route: 048
  5. CRAVIT [Suspect]
     Route: 048
  6. CRAVIT [Suspect]
     Route: 048
  7. ADALAT CC [Suspect]
     Indication: HYPERTENSION
     Route: 048
  8. PREDNISOLONE [Suspect]
     Indication: RHEUMATOID ARTHRITIS
     Route: 048
  9. LANSOPRAZOLE [Concomitant]
     Indication: GASTRIC ULCER
     Route: 048
  10. ISCOTIN [Concomitant]
     Indication: TUBERCULOSIS
     Route: 048
  11. PYDOXAL [Concomitant]
     Indication: TUBERCULOSIS
     Route: 048
  12. ESANBUTOL [Concomitant]
     Indication: TUBERCULOSIS
     Route: 048
  13. GLUFAST [Concomitant]
     Indication: DIABETES MELLITUS
     Route: 048
  14. MIYA-BM [Concomitant]
     Route: 048

REACTIONS (6)
  - CLONIC CONVULSION [None]
  - DIZZINESS [None]
  - DYSKINESIA [None]
  - HYPONATRAEMIA [None]
  - MALAISE [None]
  - RENAL IMPAIRMENT [None]
